FAERS Safety Report 8300780-9 (Version None)
Quarter: 2012Q2

REPORT INFORMATION
  Report Type: 
  Country: None (occurrence: None)
  Receive Date: 20120419
  Receipt Date: 20120419
  Transmission Date: 20120825
  Serious: Yes (Hospitalization)
  Sender: FDA-Public Use
  Company Number: None

PATIENT
  Sex: Male
  Weight: 115.7 kg

DRUGS (2)
  1. ZOLADEX [Suspect]
     Dosage: 21.6 MG
  2. CASODEX [Suspect]
     Dosage: 6350 MG

REACTIONS (3)
  - ACUTE MYOCARDIAL INFARCTION [None]
  - HYPERCHOLESTEROLAEMIA [None]
  - HYPERTENSION [None]
